FAERS Safety Report 13594112 (Version 2)
Quarter: 2017Q2

REPORT INFORMATION
  Report Type: Spontaneous
  Country: US (occurrence: US)
  Receive Date: 20170530
  Receipt Date: 20170621
  Transmission Date: 20170830
  Serious: Yes (Hospitalization)
  Sender: FDA-Public Use
  Company Number: US-PFIZER INC-2017234432

PATIENT
  Age: 80 Year
  Sex: Female
  Weight: 65.77 kg

DRUGS (2)
  1. PREMARIN [Suspect]
     Active Substance: ESTROGENS, CONJUGATED
     Indication: VULVOVAGINAL DRYNESS
     Dosage: 0.5G, TWICE A WEEK
     Dates: start: 201611
  2. PREMARIN [Suspect]
     Active Substance: ESTROGENS, CONJUGATED
     Indication: BLADDER DISORDER
     Dosage: 5 G, 1X/DAY (BEDTIME)
     Dates: start: 201611

REACTIONS (4)
  - Muscle spasms [Not Recovered/Not Resolved]
  - Wrong technique in product usage process [Recovered/Resolved]
  - Micturition urgency [Not Recovered/Not Resolved]
  - Weight increased [Not Recovered/Not Resolved]

NARRATIVE: CASE EVENT DATE: 201611
